FAERS Safety Report 13258502 (Version 1)
Quarter: 2017Q1

REPORT INFORMATION
  Report Type: Spontaneous
  Country: PL (occurrence: PL)
  Receive Date: 20170222
  Receipt Date: 20170222
  Transmission Date: 20170428
  Serious: Yes (Other)
  Sender: FDA-Public Use
  Company Number: PL-ROCHE-1889259

PATIENT
  Sex: Male

DRUGS (1)
  1. AVASTIN [Suspect]
     Active Substance: BEVACIZUMAB
     Indication: COLORECTAL CANCER
     Route: 065

REACTIONS (5)
  - Drug ineffective [Unknown]
  - Nausea [Unknown]
  - Drug effect decreased [Unknown]
  - Neoplasm progression [Unknown]
  - Depression [Unknown]

NARRATIVE: CASE EVENT DATE: 201612
